FAERS Safety Report 7148665-8 (Version None)
Quarter: 2010Q4

REPORT INFORMATION
  Report Type: 
  Country: None (occurrence: None)
  Receive Date: 20101209
  Receipt Date: 20101130
  Transmission Date: 20110411
  Serious: Yes (Life-Threatening, Hospitalization)
  Sender: FDA-Public Use
  Company Number: US-ELI_LILLY_AND_COMPANY-US201012000051

PATIENT
  Sex: Male
  Weight: 52.61 kg

DRUGS (11)
  1. GEMCITABINE HYDROCHLORIDE [Suspect]
     Indication: NON-SMALL CELL LUNG CANCER
     Dosage: 2012 MG, UNK
     Dates: start: 20101119, end: 20101126
  2. CISPLATIN [Suspect]
     Indication: NON-SMALL CELL LUNG CANCER
     Dosage: 120 MG, UNK
     Dates: start: 20101119, end: 20101119
  3. EMEND [Concomitant]
     Indication: PROPHYLAXIS
     Dosage: 80 MG, OTHER
  4. ZOFRAN [Concomitant]
     Indication: NAUSEA
     Dosage: 8 MG, AS NEEDED
  5. COMPAZINE [Concomitant]
     Indication: NAUSEA
     Dosage: 10 MG, AS NEEDED
  6. MORPHINE SULFATE [Concomitant]
     Indication: PAIN
     Dosage: 15 MG, AS NEEDED
  7. NICODERM [Concomitant]
     Dosage: UNK, DAILY (1/D)
  8. COMBIVENT [Concomitant]
     Dosage: 15 G, EVERY 6 HRS
  9. ADVAIR [Concomitant]
     Dosage: UNK, 2/D
  10. IBUPROFEN [Concomitant]
     Dosage: 400 MG, UNK
  11. MIRALAX [Concomitant]
     Dosage: UNK, AS NEEDED
     Dates: start: 20101127

REACTIONS (6)
  - CONSTIPATION [None]
  - JOINT SWELLING [None]
  - NEUTROPENIA [None]
  - PNEUMONIA [None]
  - THROMBOCYTOPENIA [None]
  - VISUAL IMPAIRMENT [None]
